FAERS Safety Report 7487088-9 (Version None)
Quarter: 2011Q2

REPORT INFORMATION
  Report Type: 
  Country: None (occurrence: None)
  Receive Date: 20110518
  Receipt Date: 20110505
  Transmission Date: 20111010
  Serious: Yes (Hospitalization)
  Sender: FDA-Public Use
  Company Number: IL-RANBAXY-2011RR-41257

PATIENT
  Age: 16 Year
  Sex: Female

DRUGS (12)
  1. TACROLIMUS [Suspect]
     Indication: IMMUNOSUPPRESSION
     Dosage: 0.2 MG/KG, UNK
  2. PAROMOMYCIN [Suspect]
  3. CASPOFUNGIN ACETATE [Suspect]
  4. FLUCONAZOLE [Suspect]
  5. METHYLPREDNISOLONE [Suspect]
     Dosage: 1 MG/KG, UNK
  6. MYCOPHENOLATE MOFETIL [Suspect]
     Indication: IMMUNOSUPPRESSION
     Dosage: 12.5 MG/KG, UNK
  7. ANTI-THYMOCYTE GLOBULIN NOS [Suspect]
     Dosage: 1.5 MG/KG, UNK
  8. METHYLPREDNISOLONE [Suspect]
     Dosage: 0.5 MG/KG, UNK
  9. INFLIXIMAB [Suspect]
     Dosage: 4 MG/KG, UNK
  10. PREDNISOLONE [Suspect]
     Indication: IMMUNOSUPPRESSION
     Dosage: 0.125 MG/KG, UNK
  11. NITAZOXANIDE [Suspect]
  12. SIROLIMUS [Suspect]
     Dosage: 0.05 MG/KG, UNK

REACTIONS (8)
  - ZYGOMYCOSIS [None]
  - METABOLIC ACIDOSIS [None]
  - LEUKOENCEPHALOPATHY [None]
  - NEUTROPENIA [None]
  - LYMPHOPENIA [None]
  - HEPATIC ENZYME ABNORMAL [None]
  - TOXICITY TO VARIOUS AGENTS [None]
  - RENAL IMPAIRMENT [None]
